FAERS Safety Report 8512179-0 (Version None)
Quarter: 2012Q2

REPORT INFORMATION
  Report Type: 
  Country: None (occurrence: None)
  Receive Date: 20120405
  Receipt Date: 20081006
  Transmission Date: 20120825
  Serious: Yes (Hospitalization)
  Sender: FDA-Public Use
  Company Number: PHEH2008US08613

PATIENT
  Age: 76 Year
  Sex: Female
  Weight: 88 kg

DRUGS (6)
  1. METHOTREXATE SODIUM [Concomitant]
  2. CARTIA XT [Concomitant]
  3. LOVASTATIN [Concomitant]
  4. CALCIUM WITH VITAMIN D (CALCIUM PHOSPHATE, CALCIUM SODIUM LACTATE, ERG [Concomitant]
  5. LEUCOVORIN (FOLINIC ACID) [Concomitant]
  6. RECLAST [Suspect]
     Indication: OSTEOPOROSIS
     Dosage: 5 MG, EVERY YEAR, INTRAVENOUS
     Route: 042
     Dates: start: 20080826

REACTIONS (2)
  - CARDIOVERSION [None]
  - ATRIAL FIBRILLATION [None]
